FAERS Safety Report 4318674-2 (Version None)
Quarter: 2004Q1

REPORT INFORMATION
  Report Type: 
  Country: None (occurrence: None)
  Receive Date: 20040315
  Receipt Date: 20040218
  Transmission Date: 20041129
  Serious: Yes (Other)
  Sender: FDA-Public Use
  Company Number: 235448

PATIENT
  Sex: 0

DRUGS (1)
  1. NORDITROPIN SIMPLEXX [Suspect]
     Indication: ILL-DEFINED DISORDER

REACTIONS (2)
  - BLOOD TEST ABNORMAL [None]
  - NASOPHARYNGITIS [None]
